FAERS Safety Report 13935428 (Version 1)
Quarter: 2017Q3

REPORT INFORMATION
  Report Type: Report from Study
  Country: IL (occurrence: IL)
  Receive Date: 20170905
  Receipt Date: 20170905
  Transmission Date: 20171127
  Serious: Yes (Other)
  Sender: FDA-Public Use
  Company Number: PHHY2017IL128444

PATIENT
  Age: 61 Year
  Sex: Female

DRUGS (1)
  1. AFINITOR [Suspect]
     Active Substance: EVEROLIMUS
     Indication: BREAST CANCER
     Dosage: UNK, QD
     Route: 048
     Dates: start: 201407, end: 201502

REACTIONS (11)
  - Malignant neoplasm progression [Unknown]
  - Pruritus [Recovering/Resolving]
  - Dizziness [Recovering/Resolving]
  - Stomatitis [Recovering/Resolving]
  - Breast cancer [Unknown]
  - Metastasis [Unknown]
  - Fatigue [Recovering/Resolving]
  - Bone marrow failure [Recovering/Resolving]
  - Rash [Recovering/Resolving]
  - Anaemia [Recovering/Resolving]
  - Haemoglobin decreased [Recovering/Resolving]
